FAERS Safety Report 16453938 (Version 1)
Quarter: 2019Q2

REPORT INFORMATION
  Report Type: Spontaneous
  Country: US (occurrence: US)
  Receive Date: 20190619
  Receipt Date: 20190619
  Transmission Date: 20190711
  Serious: No
  Sender: FDA-Public Use
  Company Number: US-ROCHE-2183822

PATIENT
  Age: 39 Year
  Sex: Female
  Weight: 112.14 kg

DRUGS (1)
  1. ACTEMRA [Suspect]
     Active Substance: TOCILIZUMAB
     Indication: TAKAYASU^S ARTERITIS
     Dosage: 0.9ML;ONGOING: YES
     Route: 058
     Dates: start: 201801

REACTIONS (3)
  - Off label use [Unknown]
  - Intentional product use issue [Unknown]
  - Injection site pain [Unknown]

NARRATIVE: CASE EVENT DATE: 20180910
